FAERS Safety Report 5619800-5 (Version None)
Quarter: 2008Q1

REPORT INFORMATION
  Report Type: 
  Country: None (occurrence: None)
  Receive Date: 20080206
  Receipt Date: 20071130
  Transmission Date: 20080703
  Serious: Yes (Death, Hospitalization)
  Sender: FDA-Public Use
  Company Number: CLOF-10539

PATIENT
  Age: 12 Year
  Sex: Male
  Weight: 31.4 kg

DRUGS (10)
  1. CLOLAR [Suspect]
     Indication: ACUTE LYMPHOCYTIC LEUKAEMIA
     Dosage: 40 MG/M2 DAILY IV
     Route: 042
     Dates: start: 20070320, end: 20070324
  2. CLOLAR [Suspect]
     Indication: ACUTE LYMPHOCYTIC LEUKAEMIA
     Dosage: 40 MG/M2 DAILY IV
     Route: 042
     Dates: start: 20070320, end: 20070324
  3. PREDNISONE TAB [Concomitant]
  4. ZOFRAN [Concomitant]
  5. PENTAMIDINE ISETHIONATE [Concomitant]
  6. NIFEDIPINE [Concomitant]
  7. FLUCONAZOLE [Concomitant]
  8. MAGNESIUM [Concomitant]
  9. POTASSIUM CHLORIDE [Concomitant]
  10. CREON [Concomitant]

REACTIONS (6)
  - BONE MARROW TRANSPLANT [None]
  - KLEBSIELLA INFECTION [None]
  - PANCYTOPENIA [None]
  - PNEUMONIA [None]
  - SEPSIS [None]
  - SINUSITIS FUNGAL [None]
